FAERS Safety Report 4295251-3 (Version None)
Quarter: 2004Q1

REPORT INFORMATION
  Report Type: 
  Country: None (occurrence: None)
  Receive Date: 20040216
  Receipt Date: 20030429
  Transmission Date: 20041129
  Serious: No
  Sender: FDA-Public Use
  Company Number: US-GLAXOSMITHKLINE-A0406695A

PATIENT
  Age: 47 Year
  Sex: Male

DRUGS (4)
  1. LAMICTAL [Suspect]
     Dosage: 600MG PER DAY
     Route: 048
     Dates: start: 20020627
  2. WELLBUTRIN [Concomitant]
     Dosage: 150MG THREE TIMES PER DAY
     Route: 048
  3. NEURONTIN [Concomitant]
  4. LEXAPRO [Concomitant]
     Dosage: 10MG UNKNOWN
     Route: 065

REACTIONS (2)
  - BALANCE DISORDER [None]
  - MUSCLE SPASMS [None]
